FAERS Safety Report 20652791 (Version 2)
Quarter: 2022Q2

REPORT INFORMATION
  Report Type: Report from Study
  Country: US (occurrence: US)
  Receive Date: 20220330
  Receipt Date: 20220420
  Transmission Date: 20220720
  Serious: Yes (Death, Hospitalization)
  Sender: FDA-Public Use
  Company Number: US-EXELIXIS-CABO-22050328

PATIENT
  Age: 73 Year
  Sex: Male

DRUGS (2)
  1. CABOMETYX [Suspect]
     Active Substance: CABOZANTINIB S-MALATE
     Indication: Product used for unknown indication
     Dosage: 60 MG, QD
     Route: 048
     Dates: start: 202202, end: 202203
  2. CABOMETYX [Suspect]
     Active Substance: CABOZANTINIB S-MALATE
     Dosage: 60 MG, QD
     Route: 048
     Dates: end: 202204

REACTIONS (3)
  - Hypophagia [Unknown]
  - Death [Fatal]
  - Malaise [Unknown]

NARRATIVE: CASE EVENT DATE: 20220310
